FAERS Safety Report 13083280 (Version 1)
Quarter: 2017Q1

REPORT INFORMATION
  Report Type: Spontaneous
  Country: US (occurrence: US)
  Receive Date: 20170104
  Receipt Date: 20170104
  Transmission Date: 20170428
  Serious: No
  Sender: FDA-Public Use
  Company Number: US-ASTRAZENECA-2016SF34872

PATIENT
  Sex: Female

DRUGS (1)
  1. SYMBICORT [Suspect]
     Active Substance: BUDESONIDE\FORMOTEROL FUMARATE DIHYDRATE
     Indication: ASTHMA
     Dosage: 160-4.5 MCG, TWO PUFFS TWICE A DAY, FOR YEARS
     Route: 055

REACTIONS (4)
  - Feeling abnormal [Not Recovered/Not Resolved]
  - Off label use [Unknown]
  - Humidity intolerance [Not Recovered/Not Resolved]
  - Intentional device misuse [Unknown]

NARRATIVE: CASE EVENT DATE: 20161218
